FAERS Safety Report 4286380-9 (Version None)
Quarter: 2004Q1

REPORT INFORMATION
  Report Type: 
  Country: None (occurrence: None)
  Receive Date: 20040205
  Receipt Date: 20040127
  Transmission Date: 20041129
  Serious: Yes (Life-Threatening)
  Sender: FDA-Public Use
  Company Number: WAES 0401USA02007

PATIENT
  Sex: Female

DRUGS (5)
  1. XANAX [Concomitant]
  2. ZYRTEC [Concomitant]
  3. PROZAC [Concomitant]
  4. MAXALT [Suspect]
     Indication: MIGRAINE
     Route: 048
     Dates: start: 20030601
  5. TAMOXIFEN CITRATE [Suspect]

REACTIONS (9)
  - BURNING SENSATION [None]
  - DIZZINESS [None]
  - DYSPNOEA [None]
  - HEADACHE [None]
  - HYPOAESTHESIA ORAL [None]
  - OESOPHAGEAL PAIN [None]
  - ORAL DISCOMFORT [None]
  - PARAESTHESIA [None]
  - VOMITING [None]
